FAERS Safety Report 16415950 (Version 2)
Quarter: 2021Q1

REPORT INFORMATION
  Report Type: Spontaneous
  Country: US (occurrence: US)
  Receive Date: 20190611
  Receipt Date: 20210105
  Transmission Date: 20210419
  Serious: No
  Sender: FDA-Public Use
  Company Number: US-SA-2019SA158234

PATIENT

DRUGS (2)
  1. DUPIXENT [Suspect]
     Active Substance: DUPILUMAB
     Indication: DERMATITIS ALLERGIC
     Dosage: 300 MG, QOW
     Route: 058
     Dates: start: 20181227
  2. DUPIXENT [Suspect]
     Active Substance: DUPILUMAB
     Indication: CONTRACEPTIVE IMPLANT

REACTIONS (5)
  - Therapeutic response shortened [Unknown]
  - Product use in unapproved indication [Unknown]
  - Eczema [Unknown]
  - Injection site swelling [Unknown]
  - Intercepted product prescribing error [Unknown]

NARRATIVE: CASE EVENT DATE: 20190404
